FAERS Safety Report 9290886 (Version 2)
Quarter: 2013Q2

REPORT INFORMATION
  Report Type: Spontaneous
  Country: HR (occurrence: HR)
  Receive Date: 20130515
  Receipt Date: 20130624
  Transmission Date: 20140414
  Serious: Yes (Hospitalization)
  Sender: FDA-Public Use
  Company Number: HR-ABBOTT-13P-216-1088753-00

PATIENT
  Age: 65 Year
  Sex: Female

DRUGS (7)
  1. CILAZIL [Concomitant]
     Indication: HYPERTENSION
     Route: 048
  2. CILAZIL PLUS [Concomitant]
     Indication: HYPERTENSION
     Route: 048
  3. KNAVON [Concomitant]
     Indication: PRODUCT USED FOR UNKNOWN INDICATION
  4. HUMIRA [Suspect]
     Indication: PSORIATIC ARTHROPATHY
     Route: 058
     Dates: start: 201111, end: 201208
  5. HUMIRA [Suspect]
  6. METHOTREXATE [Concomitant]
     Indication: PSORIATIC ARTHROPATHY
     Route: 048
     Dates: start: 201010
  7. MEDROL [Concomitant]
     Indication: PSORIATIC ARTHROPATHY
     Route: 048
     Dates: start: 200510

REACTIONS (3)
  - Hepatic adenoma [Not Recovered/Not Resolved]
  - Abdominal pain [Not Recovered/Not Resolved]
  - Abdominal wall neoplasm benign [Not Recovered/Not Resolved]
